FAERS Safety Report 6826316-7 (Version None)
Quarter: 2010Q3

REPORT INFORMATION
  Report Type: 
  Country: None (occurrence: None)
  Receive Date: 20100709
  Receipt Date: 20100702
  Transmission Date: 20110219
  Serious: Yes (Life-Threatening, Hospitalization)
  Sender: FDA-Public Use
  Company Number: PHHY2010DE19569

PATIENT
  Sex: Male
  Weight: 95 kg

DRUGS (18)
  1. ALISKIREN ALI+ [Suspect]
     Indication: HYPERTENSION
     Dosage: 150 MG, PER DAY
     Route: 048
     Dates: start: 20081210
  2. LOCOL [Suspect]
     Indication: HYPERCHOLESTEROLAEMIA
     Dosage: 80 MG, PER DAY
     Route: 048
     Dates: start: 20030311
  3. ASPIRIN [Concomitant]
     Dosage: 100 MG, PER DAY
     Route: 048
     Dates: start: 20030311
  4. ISCOVER [Concomitant]
     Dosage: 75 MG, PER DAY
     Route: 048
     Dates: start: 20030430
  5. BISOPROLOL FUMARATE [Concomitant]
     Dosage: 10 MG, PER DAY
     Dates: start: 20030311
  6. RAMIPRIL [Concomitant]
     Dosage: 5 MG, PER DAY
     Route: 048
     Dates: start: 20091021
  7. PANTOPRAZOLE [Concomitant]
     Dosage: 40 MG, PER DAY
     Route: 048
     Dates: start: 20090921
  8. TORASEMIDE [Concomitant]
     Dosage: 5 MG, QD
     Dates: start: 20051021
  9. TORASEMIDE [Concomitant]
     Dosage: 5 MG, PER DAY
     Route: 048
     Dates: start: 20090921
  10. ALFUZOSIN HCL [Concomitant]
     Dosage: 10 MG, PER DAY
     Route: 048
     Dates: start: 20091021
  11. TILIDINE [Concomitant]
     Dosage: 100 MG, PER DAY
     Route: 048
     Dates: start: 20030311
  12. NOVAMINSULFON [Concomitant]
     Dosage: UNK
     Route: 048
     Dates: start: 20030311
  13. PILOMANN [Concomitant]
     Dosage: UNK
     Route: 048
     Dates: start: 20030311
  14. AMLODIPINE [Concomitant]
     Dosage: 5 MG, PER DAY
     Route: 048
     Dates: start: 19980101, end: 20090601
  15. LISIGAMMA [Concomitant]
     Dosage: 20 MG, PER DAY
     Route: 048
     Dates: start: 20030311, end: 20081210
  16. ANTIPLATELET [Concomitant]
  17. PENTAERYTHRITOL TETRANITRATE [Concomitant]
     Dosage: 80 MG, QD
     Route: 048
     Dates: start: 20100311, end: 20101021
  18. HYDROCHLOROTHIAZIDE [Concomitant]
     Dosage: 12.5 MG, QD
     Dates: start: 20051021

REACTIONS (3)
  - ANGIOGRAM [None]
  - CORONARY ANGIOPLASTY [None]
  - STENT PLACEMENT [None]
